FAERS Safety Report 6189396-0 (Version None)
Quarter: 2009Q2

REPORT INFORMATION
  Report Type: 
  Country: None (occurrence: None)
  Receive Date: 20090512
  Receipt Date: 20090501
  Transmission Date: 20091009
  Serious: Yes (Hospitalization)
  Sender: FDA-Public Use
  Company Number: GXKR2009GB05369

PATIENT
  Age: 16 Year
  Sex: Female

DRUGS (3)
  1. CODEINE PHOSPHATE           (NGX) (CODEINE PHOSPHATE) UNKNOWN [Suspect]
     Indication: PAIN
     Dosage: 50 MG, 8QD, ORAL
     Route: 048
     Dates: start: 20090322
  2. TRAMADOL HCL [Suspect]
     Indication: PAIN
     Dosage: 30 MG, QID, ORAL
     Route: 048
     Dates: start: 20090322
  3. ACETAMINOPHEN [Concomitant]

REACTIONS (1)
  - URINARY RETENTION [None]
